FAERS Safety Report 15547747 (Version 1)
Quarter: 2018Q4

REPORT INFORMATION
  Report Type: Spontaneous
  Country: US (occurrence: US)
  Receive Date: 20181024
  Receipt Date: 20181024
  Transmission Date: 20190205
  Serious: No
  Sender: FDA-Public Use
  Company Number: US-JNJFOC-20180933434

PATIENT
  Age: 7 Decade
  Sex: Female
  Weight: 54.43 kg

DRUGS (3)
  1. WOMENS ROGAINE UNSCENTED [Suspect]
     Active Substance: MINOXIDIL
     Indication: ALOPECIA
     Dosage: LITTLE DOT DIRECTLY ONTO THE HEAD
     Route: 061
     Dates: start: 20180925
  2. WOMENS ROGAINE UNSCENTED [Suspect]
     Active Substance: MINOXIDIL
     Indication: ALOPECIA
     Dosage: LITTLE DOT DIRECTLY ONTO THE HEAD
     Route: 061
  3. BIOTIN [Concomitant]
     Active Substance: BIOTIN
     Indication: PRODUCT USED FOR UNKNOWN INDICATION

REACTIONS (3)
  - Incorrect dose administered [Unknown]
  - Wrong technique in product usage process [Unknown]
  - Product formulation issue [Unknown]
